FAERS Safety Report 6562056-X (Version None)
Quarter: 2010Q1

REPORT INFORMATION
  Report Type: 
  Country: None (occurrence: None)
  Receive Date: 20100130
  Receipt Date: 20091109
  Transmission Date: 20100710
  Serious: No
  Sender: FDA-Public Use
  Company Number: US-ABBOTT-09P-163-0598456-00

PATIENT
  Sex: Female
  Weight: 52.21 kg

DRUGS (10)
  1. HUMIRA [Suspect]
     Indication: RHEUMATOID ARTHRITIS
     Dosage: HUMIRA PRE-FILLED SYRINGE
     Dates: start: 20040101, end: 20070101
  2. HUMIRA [Suspect]
     Dosage: PEN
     Dates: start: 20070101
  3. NAPROSEN [Concomitant]
     Indication: PAIN
  4. ARAVA [Concomitant]
     Indication: RHEUMATOID ARTHRITIS
  5. METOPROLOL [Concomitant]
     Indication: HYPERTENSION
  6. PREDNISONE [Concomitant]
     Indication: RHEUMATOID ARTHRITIS
  7. TRIAMTERENE AND HYDROCHLOROTHIAZIDE [Concomitant]
     Indication: HYPERTENSION
  8. HYDRALAZINE [Concomitant]
     Indication: HYPERTENSION
  9. FISH OIL [Concomitant]
     Indication: SUPPLEMENTATION THERAPY
  10. MULTIPLE VITAMINS [Concomitant]
     Indication: VITAMIN SUPPLEMENTATION

REACTIONS (4)
  - FURUNCLE [None]
  - LOCALISED INFECTION [None]
  - SKIN ULCER [None]
  - STAPHYLOCOCCAL INFECTION [None]
